FAERS Safety Report 8459624 (Version 2)
Quarter: 2012Q4

REPORT INFORMATION
  Report Type: 
  Country: US (occurrence: US)
  Receive Date: 20120314
  Receipt Date: 20121031
  Transmission Date: 20130627
  Serious: No
  Sender: FDA-Public Use
  Company Number: US-ASTRAZENECA-2011SE35160

PATIENT
  Age: 51 Year
  Sex: Male

DRUGS (1)
  1. TOPROL XL [Suspect]
     Route: 048

REACTIONS (4)
  - Pain [Unknown]
  - Accident at work [Unknown]
  - Oropharyngeal pain [Unknown]
  - Somnolence [Unknown]
